FAERS Safety Report 13176031 (Version 1)
Quarter: 2017Q1

REPORT INFORMATION
  Report Type: Spontaneous
  Country: US (occurrence: US)
  Receive Date: 20170201
  Receipt Date: 20170201
  Transmission Date: 20170428
  Serious: No
  Sender: FDA-Public Use
  Company Number: US-PERRIGO-16US000134

PATIENT
  Sex: Male

DRUGS (6)
  1. IBUPROFEN. [Suspect]
     Active Substance: IBUPROFEN
     Indication: TOOTHACHE
  2. NAPROXEN SODIUM. [Suspect]
     Active Substance: NAPROXEN SODIUM
     Indication: HEADACHE
  3. IBUPROFEN. [Suspect]
     Active Substance: IBUPROFEN
     Indication: PAIN
     Dosage: 600 TO 800 MG, QD, PRN
     Route: 048
     Dates: end: 20160104
  4. IBUPROFEN. [Suspect]
     Active Substance: IBUPROFEN
     Indication: HEADACHE
  5. NAPROXEN SODIUM. [Suspect]
     Active Substance: NAPROXEN SODIUM
     Indication: TOOTHACHE
  6. NAPROXEN SODIUM. [Suspect]
     Active Substance: NAPROXEN SODIUM
     Indication: PAIN
     Dosage: 660 TO 880 MG, QD, PRN
     Route: 048
     Dates: end: 20160104

REACTIONS (2)
  - Incorrect dose administered [Recovered/Resolved]
  - Drug screen positive [Unknown]

NARRATIVE: CASE EVENT DATE: 20151230
